FAERS Safety Report 9748746 (Version 2)
Quarter: 2014Q1

REPORT INFORMATION
  Report Type: Spontaneous
  Country: BR (occurrence: BR)
  Receive Date: 20131212
  Receipt Date: 20140116
  Transmission Date: 20141002
  Serious: Yes (Other)
  Sender: FDA-Public Use
  Company Number: BR-ASTRAZENECA-2013SE89022

PATIENT
  Age: 1175 Day
  Sex: Male
  Weight: 18 kg

DRUGS (2)
  1. LOSEC MUPS [Suspect]
     Indication: GASTROOESOPHAGEAL REFLUX DISEASE
     Dosage: 10MG TABLET, MACERATED IN 10ML WATER, 10 MG DAILY
     Route: 050
     Dates: start: 20131203
  2. LOSEC MUPS [Suspect]
     Indication: GASTROOESOPHAGEAL REFLUX DISEASE
     Dosage: DISPERSING THE TABLET IN 60 MG WATER
     Route: 050

REACTIONS (1)
  - Drug administration error [Recovered/Resolved]
